FAERS Safety Report 5206929-9 (Version None)
Quarter: 2007Q1

REPORT INFORMATION
  Report Type: 
  Country: None (occurrence: None)
  Receive Date: 20070105
  Receipt Date: 20070105
  Transmission Date: 20070707
  Serious: Yes (Life-Threatening, Hospitalization)
  Sender: FDA-Public Use
  Company Number: None

PATIENT
  Age: 73 Year
  Sex: Male
  Weight: 66 kg

DRUGS (7)
  1. WARFARIN SODIUM [Suspect]
     Indication: MITRAL VALVE REPLACEMENT
     Dosage: 1 MG PO QD
     Route: 048
     Dates: start: 20060721, end: 20060729
  2. AMIODARONE HCL [Concomitant]
  3. DOCUSATE [Concomitant]
  4. OMEPRAZOLE [Concomitant]
  5. METOPROLOL SUCCINATE [Concomitant]
  6. PERCOCET [Concomitant]
  7. FINASTERIDE [Concomitant]

REACTIONS (7)
  - CARDIAC TAMPONADE [None]
  - HYPOTENSION [None]
  - HYPOXIA [None]
  - INTERNATIONAL NORMALISED RATIO INCREASED [None]
  - PERICARDIAL EFFUSION [None]
  - PERICARDIAL HAEMORRHAGE [None]
  - STAPHYLOCOCCAL INFECTION [None]
